FAERS Safety Report 15349332 (Version 1)
Quarter: 2018Q3

REPORT INFORMATION
  Report Type: Spontaneous
  Country: CN (occurrence: CN)
  Receive Date: 20180904
  Receipt Date: 20180904
  Transmission Date: 20181010
  Serious: Yes (Hospitalization)
  Sender: FDA-Public Use
  Company Number: CN-BAYER-2018-164087

PATIENT
  Age: 85 Year
  Sex: Male

DRUGS (6)
  1. CLOPIDOGREL BISULFATE. [Concomitant]
     Active Substance: CLOPIDOGREL BISULFATE
     Indication: COAGULOPATHY
     Dosage: UNK
     Dates: start: 20180622, end: 20180630
  2. BAYASPIRIN 100 MG [Suspect]
     Active Substance: ASPIRIN
     Indication: COAGULOPATHY
     Dosage: 100 MG, QD
     Route: 048
     Dates: start: 20180618, end: 20180621
  3. TICAGRELOR. [Concomitant]
     Active Substance: TICAGRELOR
     Indication: COAGULOPATHY
     Dosage: 90 MG, BID
     Route: 048
     Dates: start: 20180619, end: 20180622
  4. BAYASPIRIN 100 MG [Suspect]
     Active Substance: ASPIRIN
     Indication: ANTIPLATELET THERAPY
  5. NADROPARIN CALCIUM [Concomitant]
     Active Substance: NADROPARIN CALCIUM
     Indication: COAGULOPATHY
     Dosage: 5000 IU, BID
     Route: 058
     Dates: start: 20180619, end: 20180621
  6. CLOPIDOGREL BISULFATE. [Concomitant]
     Active Substance: CLOPIDOGREL BISULFATE
     Indication: COAGULOPATHY
     Dosage: 75 MG, QD
     Route: 048
     Dates: start: 20180618, end: 20180619

REACTIONS (1)
  - Faeces discoloured [Recovering/Resolving]

NARRATIVE: CASE EVENT DATE: 20180621
